FAERS Safety Report 6475510-6 (Version None)
Quarter: 2009Q4

REPORT INFORMATION
  Report Type: 
  Country: None (occurrence: None)
  Receive Date: 20091204
  Receipt Date: 20091127
  Transmission Date: 20100525
  Serious: Yes (Hospitalization)
  Sender: FDA-Public Use
  Company Number: PHHO2009DE06624

PATIENT
  Sex: Male
  Weight: 76 kg

DRUGS (2)
  1. AFINITOR [Suspect]
     Indication: RENAL CANCER METASTATIC
     Dosage: 10 MG
     Route: 048
     Dates: start: 20090324, end: 20090519
  2. IBUFLAM [Concomitant]
     Dosage: 10 X 800 MG
     Route: 048
     Dates: start: 20090401

REACTIONS (9)
  - ARTHRALGIA [None]
  - BACK PAIN [None]
  - DIARRHOEA [None]
  - DYSPNOEA [None]
  - FATIGUE [None]
  - MALIGNANT NEOPLASM PROGRESSION [None]
  - METASTASES TO EYE [None]
  - PAIN [None]
  - VOMITING [None]
